FAERS Safety Report 11378942 (Version 1)
Quarter: 2015Q3

REPORT INFORMATION
  Report Type: Spontaneous
  Country: US (occurrence: US)
  Receive Date: 20150811
  Receipt Date: 20150811
  Transmission Date: 20151125
  Serious: No
  Sender: FDA-Public Use
  Company Number: US-ELI_LILLY_AND_COMPANY-US200805001901

PATIENT
  Sex: Male

DRUGS (3)
  1. CIALIS [Suspect]
     Active Substance: TADALAFIL
     Dosage: 20 MG, AS NEEDED
     Dates: start: 2007
  2. COUMADIN [Concomitant]
     Active Substance: WARFARIN SODIUM
  3. CIALIS [Suspect]
     Active Substance: TADALAFIL
     Dosage: 40 MG, OTHER
     Dates: start: 20080509

REACTIONS (2)
  - Flushing [Unknown]
  - Accidental overdose [Unknown]

NARRATIVE: CASE EVENT DATE: 20080509
